FAERS Safety Report 16725131 (Version 4)
Quarter: 2020Q1

REPORT INFORMATION
  Report Type: Spontaneous
  Country: US (occurrence: US)
  Receive Date: 20190821
  Receipt Date: 20200322
  Transmission Date: 20200409
  Serious: No
  Sender: FDA-Public Use
  Company Number: US-AMAG PHARMACEUTICALS, INC.-AMAG201904243

PATIENT
  Age: 32 Year
  Sex: Female
  Weight: 91.71 kg

DRUGS (3)
  1. DICLEGIS [Concomitant]
     Active Substance: DOXYLAMINE SUCCINATE\PYRIDOXINE HYDROCHLORIDE
     Indication: PRODUCT USED FOR UNKNOWN INDICATION
  2. MAKENA [Suspect]
     Active Substance: HYDROXYPROGESTERONE CAPROATE
     Indication: PREMATURE DELIVERY
     Dosage: 275MG/1.1ML
     Route: 058
     Dates: start: 20190807, end: 2019
  3. PRENATAL VITAMINS [Concomitant]
     Active Substance: VITAMINS
     Indication: PRODUCT USED FOR UNKNOWN INDICATION

REACTIONS (8)
  - Injection site erythema [Not Recovered/Not Resolved]
  - Injection site nodule [Not Recovered/Not Resolved]
  - Injection site rash [Not Recovered/Not Resolved]
  - Injection site swelling [Unknown]
  - Mood altered [Unknown]
  - Somnolence [Unknown]
  - Injection site pruritus [Unknown]
  - Injection site irritation [Unknown]

NARRATIVE: CASE EVENT DATE: 201908
